FAERS Safety Report 9439109 (Version 2)
Quarter: 2013Q3

REPORT INFORMATION
  Report Type: Spontaneous
  Country: IT (occurrence: IT)
  Receive Date: 20130802
  Receipt Date: 20130823
  Transmission Date: 20140515
  Serious: Yes (Hospitalization)
  Sender: FDA-Public Use
  Company Number: PHHY2013IT081049

PATIENT
  Sex: Male

DRUGS (9)
  1. OMEPRAZOLE [Suspect]
     Dosage: 40 MG, ONCE/SINGLE
     Route: 042
     Dates: start: 20130521, end: 20130521
  2. ESMERON [Suspect]
     Indication: ANAESTHESIA
     Dosage: 50 MG, TOTAL
     Route: 042
     Dates: start: 20130521, end: 20130521
  3. TORA-DOL [Suspect]
     Indication: ANALGESIC THERAPY
     Dosage: 120 MG, UNK
     Route: 042
     Dates: start: 20130521, end: 20130522
  4. PERFALGAN [Suspect]
     Indication: ANALGESIC THERAPY
     Dosage: 4 G, UNK
     Route: 042
     Dates: start: 20130521, end: 20130522
  5. IVOR [Suspect]
     Indication: PROPHYLAXIS
     Dosage: 3500 IU, QD
     Route: 058
     Dates: start: 20130521, end: 20130524
  6. CEFAMEZIN [Suspect]
     Indication: ANTIBIOTIC PROPHYLAXIS
     Dosage: 2 G, QD
     Route: 042
     Dates: start: 20130521, end: 20130522
  7. PROPOFOL [Suspect]
     Indication: ANAESTHESIA
     Dosage: 4 MG/KG, PER MINUTE
     Route: 042
     Dates: start: 20130521, end: 20130521
  8. REMIFENTANIL TEVA [Suspect]
     Indication: ANAESTHESIA
     Dosage: 0.4 MG/KG, PER MINUTE
     Route: 042
     Dates: start: 20130521, end: 20130521
  9. MORFINA MOLTENI [Suspect]
     Dosage: 10 MG, SINGLE
     Route: 042

REACTIONS (1)
  - Renal failure acute [Recovered/Resolved]
